FAERS Safety Report 9220985 (Version 1)
Quarter: 2013Q2

REPORT INFORMATION
  Report Type: Spontaneous
  Country: US (occurrence: US)
  Receive Date: 20130409
  Receipt Date: 20130409
  Transmission Date: 20140414
  Serious: Yes (Other)
  Sender: FDA-Public Use
  Company Number: US-BRISTOL-MYERS SQUIBB COMPANY-18728659

PATIENT
  Age: 79 Year
  Sex: Female
  Weight: 81.63 kg

DRUGS (2)
  1. COUMADIN [Suspect]
     Indication: PULMONARY EMBOLISM
     Dosage: 1DF:COUMADIN 5MG AND 7.5MG ON CERTAIN DAYS
  2. LOVENOX [Suspect]

REACTIONS (6)
  - Thrombosis [Unknown]
  - International normalised ratio increased [Unknown]
  - Rotator cuff syndrome [Unknown]
  - Ecchymosis [Unknown]
  - Contusion [Unknown]
  - Fall [Unknown]
